FAERS Safety Report 5214944-4 (Version None)
Quarter: 2007Q1

REPORT INFORMATION
  Report Type: 
  Country: None (occurrence: None)
  Receive Date: 20070119
  Receipt Date: 20070119
  Transmission Date: 20070707
  Serious: No
  Sender: FDA-Public Use
  Company Number: None

PATIENT
  Age: 82 Year
  Sex: Female
  Weight: 51 kg

DRUGS (3)
  1. CUBICIN [Suspect]
     Indication: CELLULITIS
     Dosage: 200MG EVERY 24 HOURS I.V.
     Route: 042
     Dates: start: 20070109, end: 20070110
  2. CUBICIN [Suspect]
     Indication: HYSTERECTOMY
     Dosage: 200MG EVERY 24 HOURS I.V.
     Route: 042
     Dates: start: 20070109, end: 20070110
  3. INVANZ [Suspect]
     Dosage: 1GM EVERY 24 HOURS I.V.
     Route: 042

REACTIONS (1)
  - LETHARGY [None]
